FAERS Safety Report 7966055-2 (Version None)
Quarter: 2011Q4

REPORT INFORMATION
  Report Type: 
  Country: None (occurrence: None)
  Receive Date: 20111208
  Receipt Date: 20111201
  Transmission Date: 20120403
  Serious: Yes (Other)
  Sender: FDA-Public Use
  Company Number: IT-BAXTER-2011BH037926

PATIENT
  Age: 15 Year
  Sex: Female

DRUGS (3)
  1. CYCLOPHOSPHAMIDE [Suspect]
     Indication: RHABDOMYOSARCOMA
     Route: 042
  2. DOXORUBICIN HCL [Suspect]
     Indication: RHABDOMYOSARCOMA
     Route: 065
  3. DACTINOMYCIN [Suspect]
     Indication: RHABDOMYOSARCOMA
     Route: 065

REACTIONS (6)
  - RHABDOMYOSARCOMA [None]
  - NEOPLASM PROGRESSION [None]
  - PREMATURE DELIVERY [None]
  - CAESAREAN SECTION [None]
  - MATERNAL EXPOSURE DURING PREGNANCY [None]
  - OLIGOHYDRAMNIOS [None]
